FAERS Safety Report 4962469-3 (Version None)
Quarter: 2006Q1

REPORT INFORMATION
  Report Type: 
  Country: None (occurrence: None)
  Receive Date: 20060329
  Receipt Date: 20060320
  Transmission Date: 20060701
  Serious: Yes (Death)
  Sender: FDA-Public Use
  Company Number: S06-USA-01163-01

PATIENT
  Sex: 0

DRUGS (1)
  1. LEXAPRO [Suspect]

REACTIONS (1)
  - DRUG TOXICITY [None]
